FAERS Safety Report 10543430 (Version 2)
Quarter: 2014Q4

REPORT INFORMATION
  Report Type: Spontaneous
  Country: US (occurrence: None)
  Receive Date: 20141010
  Receipt Date: 20141205
  Transmission Date: 20150529
  Serious: No
  Sender: FDA-Public Use
  Company Number: 163-POMAL-14080758

PATIENT
  Age: 71 Year
  Sex: Female

DRUGS (4)
  1. POMALYST [Suspect]
     Active Substance: POMALIDOMIDE
     Indication: PLASMA CELL MYELOMA
     Route: 048
     Dates: start: 20140519, end: 2014
  2. MEDROL [Concomitant]
     Active Substance: METHYLPREDNISOLONE
  3. ASPIRIN. [Concomitant]
     Active Substance: ASPIRIN
  4. BIAXIN [Concomitant]
     Active Substance: CLARITHROMYCIN

REACTIONS (9)
  - Pruritus [None]
  - Somnolence [None]
  - Dizziness [None]
  - Rash [None]
  - Fatigue [None]
  - Contusion [None]
  - Back pain [None]
  - Malaise [None]
  - Nausea [None]

NARRATIVE: CASE EVENT DATE: 20140718
